FAERS Safety Report 8661916 (Version 2)
Quarter: 2014Q1

REPORT INFORMATION
  Report Type: Report from Study
  Country: CA (occurrence: CA)
  Receive Date: 20120712
  Receipt Date: 20140207
  Transmission Date: 20141002
  Serious: Yes (Other)
  Sender: FDA-Public Use
  Company Number: CA-JNJFOC-20120701222

PATIENT
  Age: 57 Year
  Sex: Female
  Weight: 79 kg

DRUGS (5)
  1. REMICADE [Suspect]
     Indication: RHEUMATOID ARTHRITIS
     Route: 042
     Dates: start: 20050817
  2. REMICADE [Suspect]
     Indication: RHEUMATOID ARTHRITIS
     Route: 042
     Dates: start: 200812
  3. SYNTHROID [Concomitant]
     Route: 065
  4. PLAQUENIL [Concomitant]
     Route: 065
  5. RISEDRONATE [Concomitant]
     Route: 065

REACTIONS (2)
  - Chest pain [Not Recovered/Not Resolved]
  - Angina pectoris [Unknown]
